FAERS Safety Report 19202294 (Version 1)
Quarter: 2021Q2

REPORT INFORMATION
  Report Type: Spontaneous
  Country: GB (occurrence: US)
  Receive Date: 20210430
  Receipt Date: 20210430
  Transmission Date: 20210717
  Serious: No
  Sender: FDA-Public Use
  Company Number: GB-009507513-2104USA007225

PATIENT
  Age: 62 Year
  Sex: Female

DRUGS (2)
  1. TEMODAR [Suspect]
     Active Substance: TEMOZOLOMIDE
     Indication: GANGLIOGLIOMA
     Route: 048
  2. TEMODAR [Suspect]
     Active Substance: TEMOZOLOMIDE
     Indication: BRAF V600E MUTATION POSITIVE

REACTIONS (1)
  - Product use in unapproved indication [Unknown]
